FAERS Safety Report 17778005 (Version 1)
Quarter: 2020Q2

REPORT INFORMATION
  Report Type: Spontaneous
  Country: IT (occurrence: IT)
  Receive Date: 20200513
  Receipt Date: 20200513
  Transmission Date: 20200714
  Serious: Yes (Other)
  Sender: FDA-Public Use
  Company Number: NVSC2020IT128931

PATIENT
  Age: 29 Year
  Sex: Female

DRUGS (2)
  1. AMOXICILLIN+CLAVULANIC ACID [Concomitant]
     Active Substance: AMOXICILLIN\CLAVULANIC ACID
     Indication: TOOTHACHE
     Dosage: 2 G, QD (1 G, BID)
     Route: 065
  2. IBUPROFEN. [Suspect]
     Active Substance: IBUPROFEN
     Indication: TOOTHACHE
     Dosage: 1200 MG, QD (600 MG, BID)
     Route: 065

REACTIONS (14)
  - Leukocytosis [Recovered/Resolved]
  - Meningitis aseptic [Recovered/Resolved]
  - Nausea [Recovered/Resolved]
  - Skin test positive [Recovered/Resolved]
  - Hyperpyrexia [Recovered/Resolved]
  - Red blood cell sedimentation rate increased [Recovered/Resolved]
  - C-reactive protein increased [Recovered/Resolved]
  - Type IV hypersensitivity reaction [Recovered/Resolved]
  - Musculoskeletal stiffness [Recovered/Resolved]
  - CSF protein increased [Recovered/Resolved]
  - Photophobia [Recovered/Resolved]
  - CSF glucose increased [Recovered/Resolved]
  - Pleocytosis [Recovered/Resolved]
  - Headache [Recovered/Resolved]
